FAERS Safety Report 9504023 (Version 1)
Quarter: 2013Q3

REPORT INFORMATION
  Report Type: Spontaneous
  Country: US (occurrence: US)
  Receive Date: 20130906
  Receipt Date: 20130906
  Transmission Date: 20140515
  Serious: No
  Sender: FDA-Public Use
  Company Number: US-BAYER-2013-108034

PATIENT
  Age: 58 Year
  Sex: Female

DRUGS (1)
  1. ALEVE CAPLET [Suspect]
     Indication: ARTHRITIS
     Dosage: UNK UNK, PRN

REACTIONS (4)
  - Abdominal pain upper [None]
  - Hot flush [None]
  - Hyperhidrosis [None]
  - Nausea [None]
